FAERS Safety Report 12840475 (Version 1)
Quarter: 2016Q4

REPORT INFORMATION
  Report Type: Spontaneous
  Country: US (occurrence: US)
  Receive Date: 20161012
  Receipt Date: 20161012
  Transmission Date: 20170207
  Serious: No
  Sender: FDA-Public Use
  Company Number: US-SHIRE-US201612726

PATIENT
  Age: 65 Year
  Sex: Male
  Weight: 79.37 kg

DRUGS (15)
  1. AVENOVA [Concomitant]
     Indication: EYE DISORDER
     Dosage: UNK, UNKNOWN
     Route: 065
     Dates: start: 2015
  2. CALCIUM                            /00060701/ [Concomitant]
     Active Substance: CALCIUM
     Indication: ROUTINE HEALTH MAINTENANCE
     Dosage: 500 MG, 1X/DAY:QD
     Route: 048
     Dates: start: 2014
  3. OMEGA-3                            /01866101/ [Concomitant]
     Active Substance: OMEGA-3 FATTY ACIDS
     Indication: MEIBOMIAN GLAND DYSFUNCTION
     Dosage: UNK (15,400 TOTAL DOSAGE), UNK, 2X/DAY:BID
     Route: 048
     Dates: start: 2014
  4. VITAMIN C [Concomitant]
     Active Substance: ASCORBIC ACID
     Indication: ROUTINE HEALTH MAINTENANCE
     Dosage: 500 MG, 1X/DAY:QD
     Route: 048
     Dates: start: 2014
  5. VITAMIN E                          /00110501/ [Concomitant]
     Active Substance: TOCOPHEROL
     Indication: ROUTINE HEALTH MAINTENANCE
     Dosage: 1000 MG, 1X/DAY:QD
     Route: 048
     Dates: start: 2014
  6. XIIDRA [Suspect]
     Active Substance: LIFITEGRAST
     Indication: DRY EYE
     Dosage: 1 GTT (OU), 2X/DAY:BID
     Route: 047
     Dates: start: 20160802
  7. ACCOLATE [Concomitant]
     Active Substance: ZAFIRLUKAST
     Indication: ASTHMA
     Dosage: 20 MG, 2X/DAY:BID
     Route: 048
  8. COENZYME Q10 [Concomitant]
     Active Substance: UBIDECARENONE
     Indication: ROUTINE HEALTH MAINTENANCE
     Dosage: 100 MG, 1X/DAY:QD
     Route: 048
     Dates: start: 2014
  9. DYMISTA [Concomitant]
     Active Substance: AZELASTINE HYDROCHLORIDE\FLUTICASONE PROPIONATE
     Indication: SINUSITIS
     Dosage: UNK, UNKNOWN
     Route: 065
  10. ADVAIR HFA [Concomitant]
     Active Substance: FLUTICASONE PROPIONATE\SALMETEROL XINAFOATE
     Indication: ASTHMA
     Dosage: UNK (250/50 INHALER), UNKNOWN
     Route: 065
     Dates: start: 2001
  11. IRON GLYCINATE [Concomitant]
     Indication: ROUTINE HEALTH MAINTENANCE
     Dosage: 28 MG, 1X/DAY:QD
     Route: 048
     Dates: start: 2014
  12. REFRESH OPTIVE [Concomitant]
     Active Substance: CARBOXYMETHYLCELLULOSE SODIUM\GLYCERIN
     Indication: DRY EYE
     Dosage: UNK DF, AS REQ^D Q 30MINS
     Route: 047
     Dates: start: 2015
  13. CELEBREX [Concomitant]
     Active Substance: CELECOXIB
     Indication: ARTHROPATHY
     Dosage: 200 MG, 1X/DAY:QD
     Route: 048
  14. NEXIUM [Concomitant]
     Active Substance: ESOMEPRAZOLE MAGNESIUM
     Indication: GASTROOESOPHAGEAL REFLUX DISEASE
     Dosage: 40 MG, 1X/DAY:QD
     Route: 048
  15. COMBIVENT [Concomitant]
     Active Substance: ALBUTEROL SULFATE\IPRATROPIUM BROMIDE
     Indication: ASTHMA
     Dosage: UNK, AS REQ^D (INHALER)

REACTIONS (3)
  - Vision blurred [Not Recovered/Not Resolved]
  - Incorrect product storage [Unknown]
  - Eye irritation [Not Recovered/Not Resolved]

NARRATIVE: CASE EVENT DATE: 20160802
